FAERS Safety Report 9719643 (Version 1)
Quarter: 2013Q4

REPORT INFORMATION
  Report Type: Spontaneous
  Country: US (occurrence: US)
  Receive Date: 20131128
  Receipt Date: 20131128
  Transmission Date: 20140711
  Serious: Yes (Death)
  Sender: FDA-Public Use
  Company Number: US-ROCHE-1310667

PATIENT
  Age: 53 Year
  Sex: Female

DRUGS (3)
  1. RITUXIMAB [Suspect]
     Indication: RHEUMATOID ARTHRITIS
     Route: 065
  2. LEFLUNOMIDE [Concomitant]
  3. METHOTREXATE [Concomitant]

REACTIONS (1)
  - Hyperammonaemia [Fatal]
